FAERS Safety Report 8034303-9 (Version None)
Quarter: 2012Q1

REPORT INFORMATION
  Report Type: 
  Country: None (occurrence: None)
  Receive Date: 20120110
  Receipt Date: 20120105
  Transmission Date: 20120608
  Serious: Yes (Hospitalization)
  Sender: FDA-Public Use
  Company Number: PHHY2012MX001489

PATIENT
  Age: 78 Year
  Sex: Female

DRUGS (3)
  1. ACETAMINOPHEN [Concomitant]
     Indication: PAIN
  2. ZOLEDRONOC ACID [Suspect]
     Indication: OSTEOPOROSIS
     Dosage: 5 MG/100ML/ PER YEAR
     Route: 042
     Dates: start: 20100101
  3. CLONAZEPAM [Concomitant]
     Indication: SLEEP DISORDER
     Dosage: 1/4 OF TABLET

REACTIONS (4)
  - PAIN IN EXTREMITY [None]
  - ABSCESS LIMB [None]
  - BONE PAIN [None]
  - DRUG INEFFECTIVE [None]
